FAERS Safety Report 18943136 (Version 1)
Quarter: 2021Q1

REPORT INFORMATION
  Report Type: Spontaneous
  Country: RU (occurrence: RU)
  Receive Date: 20210226
  Receipt Date: 20210226
  Transmission Date: 20210420
  Serious: Yes (Other)
  Sender: FDA-Public Use
  Company Number: RU-ROCHE-2774614

PATIENT
  Age: 4 Year

DRUGS (1)
  1. EMICIZUMAB. [Suspect]
     Active Substance: EMICIZUMAB
     Indication: FACTOR VIII DEFICIENCY
     Dosage: DURATION ? 1 YEAR 1 MONTH
     Route: 065

REACTIONS (1)
  - Haemarthrosis [Unknown]
